FAERS Safety Report 14471111 (Version 1)
Quarter: 2018Q1

REPORT INFORMATION
  Report Type: Spontaneous
  Country: US (occurrence: US)
  Receive Date: 20180131
  Receipt Date: 20180131
  Transmission Date: 20180509
  Serious: Yes (Hospitalization, Disabling, Other)
  Sender: FDA-Public Use
  Company Number: None

PATIENT
  Age: 76 Year
  Sex: Female
  Weight: 69.85 kg

DRUGS (5)
  1. BUPRION [Concomitant]
     Active Substance: BUPROPION HYDROCHLORIDE
  2. RISPERIADONE [Concomitant]
  3. INGREZZA [Suspect]
     Active Substance: VALBENAZINE
     Indication: TARDIVE DYSKINESIA
     Dosage: 1 PILL DAILY BY MOUTH
     Route: 048
     Dates: start: 20180110
  4. LITHIUM CARBONATE. [Concomitant]
     Active Substance: LITHIUM CARBONATE
  5. SEROQUEL [Concomitant]
     Active Substance: QUETIAPINE FUMARATE

REACTIONS (6)
  - Dysstasia [None]
  - Heart rate increased [None]
  - Hallucination [None]
  - Balance disorder [None]
  - Drug interaction [None]
  - Therapy change [None]

NARRATIVE: CASE EVENT DATE: 20171209
